FAERS Safety Report 8383501-3 (Version None)
Quarter: 2012Q2

REPORT INFORMATION
  Report Type: 
  Country: None (occurrence: None)
  Receive Date: 20120524
  Receipt Date: 20120522
  Transmission Date: 20120825
  Serious: Yes (Life-Threatening, Hospitalization)
  Sender: FDA-Public Use
  Company Number: PHHY2012BR043970

PATIENT
  Sex: Female

DRUGS (5)
  1. SOMALGIN [Concomitant]
  2. VASLIP [Concomitant]
  3. ONBREZ [Suspect]
     Indication: EMPHYSEMA
     Dosage: 150 MCG ONCE DAILY
     Dates: start: 20111001, end: 20120127
  4. PROPAFENONE HCL [Concomitant]
  5. OLMESARTAN MEDOXOMIL [Concomitant]

REACTIONS (2)
  - COMA [None]
  - ANEURYSM [None]
